FAERS Safety Report 23545668 (Version 1)
Quarter: 2024Q1

REPORT INFORMATION
  Report Type: Spontaneous
  Country: US (occurrence: None)
  Receive Date: 20240218
  Receipt Date: 20240218
  Transmission Date: 20240410
  Serious: No
  Sender: FDA-Public Use
  Company Number: None

PATIENT
  Age: 35 Year
  Sex: Female
  Weight: 74.25 kg

DRUGS (13)
  1. VEOZAH [Suspect]
     Active Substance: FEZOLINETANT
     Indication: Hot flush
     Dosage: OTHER QUANTITY : 1 TABLET(S);?FREQUENCY : AT BEDTIME;?
     Route: 048
     Dates: start: 20240208
  2. VEOZAH [Suspect]
     Active Substance: FEZOLINETANT
     Indication: Osteoporosis
  3. LUPRON [Concomitant]
  4. EXEMESTANE [Concomitant]
     Active Substance: EXEMESTANE
  5. LEVOTHYROXINE [Concomitant]
  6. ALBUTEROL [Concomitant]
     Active Substance: ALBUTEROL
  7. sumatriptin [Concomitant]
  8. Multivitamin [Concomitant]
  9. IBUPROFEN [Concomitant]
  10. ACETAMINOPHEN [Concomitant]
  11. afrin [Concomitant]
  12. ZYRTEC [Concomitant]
     Active Substance: CETIRIZINE HYDROCHLORIDE
  13. BENADRYL [Concomitant]
     Active Substance: DIPHENHYDRAMINE HYDROCHLORIDE

REACTIONS (5)
  - Feeling abnormal [None]
  - Eye movement disorder [None]
  - Abnormal sensation in eye [None]
  - Disorientation [None]
  - Neuropathy peripheral [None]

NARRATIVE: CASE EVENT DATE: 20240212
